FAERS Safety Report 5017800-X (Version None)
Quarter: 2006Q2

REPORT INFORMATION
  Report Type: 
  Country: None (occurrence: None)
  Receive Date: 20060530
  Receipt Date: 20050322
  Transmission Date: 20061013
  Serious: Yes (Other)
  Sender: FDA-Public Use
  Company Number: 2005048913

PATIENT
  Age: 62 Year
  Sex: Female
  Weight: 81.3 kg

DRUGS (11)
  1. LYRICA [Suspect]
     Indication: PAIN
     Dosage: 75 MG, ORAL
     Route: 048
     Dates: start: 20050117, end: 20050309
  2. BUPRENORPHINE HCL [Concomitant]
  3. OMEPRAZOLE [Concomitant]
  4. CITALOPRAM HYDROBROMIDE [Concomitant]
  5. LACTULOSE [Concomitant]
  6. DIAZEPAM [Concomitant]
  7. WARFARIN SODIUM [Concomitant]
  8. SENNA [Concomitant]
  9. GAVISCON [Concomitant]
  10. OXYTETRACYCLINE [Concomitant]
  11. GEMFIBROZIL [Concomitant]

REACTIONS (1)
  - ULCER HAEMORRHAGE [None]
